FAERS Safety Report 10024643 (Version 1)
Quarter: 2014Q1

REPORT INFORMATION
  Report Type: Spontaneous
  Country: BR (occurrence: BR)
  Receive Date: 20140320
  Receipt Date: 20140320
  Transmission Date: 20141002
  Serious: Yes (Other)
  Sender: FDA-Public Use
  Company Number: BR-ASTRAZENECA-2014SE17824

PATIENT
  Age: 50 Year
  Sex: Female
  Weight: 60 kg

DRUGS (4)
  1. SELOZOK [Suspect]
     Indication: ARRHYTHMIA
     Dosage: DAILY
     Route: 048
     Dates: start: 2006, end: 201209
  2. SELOZOK [Suspect]
     Indication: HYPERTENSION
     Dosage: DAILY
     Route: 048
     Dates: start: 2006, end: 201209
  3. SELOZOK [Suspect]
     Indication: ARRHYTHMIA
     Dosage: DAILY
     Route: 048
     Dates: start: 201209
  4. SELOZOK [Suspect]
     Indication: HYPERTENSION
     Dosage: DAILY
     Route: 048
     Dates: start: 201209

REACTIONS (9)
  - Blood pressure increased [Recovered/Resolved]
  - Heart rate decreased [Recovered/Resolved]
  - Nausea [Recovered/Resolved]
  - Dysuria [Not Recovered/Not Resolved]
  - Weight decreased [Not Recovered/Not Resolved]
  - Ear pain [Not Recovered/Not Resolved]
  - Hypoaesthesia [Not Recovered/Not Resolved]
  - Nervousness [Recovered/Resolved]
  - Drug ineffective [Recovered/Resolved]
